FAERS Safety Report 8924349 (Version 1)
Quarter: 2012Q4

REPORT INFORMATION
  Report Type: 
  Country: US (occurrence: US)
  Receive Date: 20121126
  Receipt Date: 20121126
  Transmission Date: 20130627
  Serious: Yes (Other)
  Sender: FDA-Public Use
  Company Number: US-PFIZER INC-2012293973

PATIENT
  Age: 35 Year
  Sex: Female

DRUGS (12)
  1. IBUPROFEN [Suspect]
     Indication: PRODUCT USED FOR UNKNOWN INDICATION
     Dosage: As needed
     Route: 065
  2. SERTRALINE HCL [Suspect]
     Indication: DEPRESSION
     Dosage: 50 mg (100 mg (tablets) 1/2 tablet), 1x/day
     Route: 048
     Dates: start: 20050929, end: 20060716
  3. TOPAMAX [Suspect]
     Indication: MIGRAINE
     Dosage: 25 mg, 2x/day
     Route: 048
     Dates: start: 200509, end: 200512
  4. AMOXICILLIN [Suspect]
     Indication: INFECTION
     Dosage: 500 mg, 3x/day
     Route: 065
     Dates: start: 20050712, end: 20050803
  5. AMOXICILLIN [Suspect]
     Dosage: 500 mg, 3x/day
     Dates: start: 20060419, end: 20060429
  6. ERRIN [Suspect]
     Indication: CONTRACEPTION
     Dosage: 0.35 mg (tablet),one tablet daily
     Route: 048
     Dates: start: 200206, end: 200512
  7. IMITREX [Suspect]
     Indication: MIGRAINE
     Dosage: 50 mg (tablets) 3 tablets daily
     Route: 048
     Dates: start: 20050722, end: 20080819
  8. ACETAMINOPHEN\BUTALBITAL [Suspect]
     Indication: MIGRAINE
     Dosage: UNK
     Route: 065
     Dates: start: 200603, end: 200606
  9. CEPHALEXIN [Suspect]
     Indication: INFECTION
     Dosage: 250 mg, 4x/day
     Route: 065
     Dates: start: 20050405, end: 20060412
  10. EPIDURAL STEROID [Suspect]
     Indication: ANESTHESIA
     Route: 065
  11. CAFFEINE [Suspect]
     Indication: MIGRAINE
     Dosage: UNK
     Route: 065
     Dates: start: 20060120, end: 20070923
  12. MULTIVITAMINS [Concomitant]
     Route: 048

REACTIONS (9)
  - Emotional disorder [Unknown]
  - Otitis media [Unknown]
  - Ear congestion [Unknown]
  - Nasal congestion [Unknown]
  - Upper respiratory tract congestion [Unknown]
  - Pregnancy [None]
  - Maternal exposure during pregnancy [None]
  - Migraine [None]
  - Uterine leiomyoma [None]
